FAERS Safety Report 12582584 (Version 1)
Quarter: 2016Q3

REPORT INFORMATION
  Report Type: Report from Study
  Country: DE (occurrence: DE)
  Receive Date: 20160722
  Receipt Date: 20160722
  Transmission Date: 20161109
  Serious: Yes (Death, Hospitalization, Other)
  Sender: FDA-Public Use
  Company Number: PHHY2015DE093040

PATIENT
  Sex: Female
  Weight: 58 kg

DRUGS (7)
  1. IBUPROFEN. [Concomitant]
     Active Substance: IBUPROFEN
     Indication: PAIN
     Dosage: ON DEMAND
     Route: 065
     Dates: start: 20141211
  2. ZOMETA [Suspect]
     Active Substance: ZOLEDRONIC ACID
     Indication: PRODUCT USED FOR UNKNOWN INDICATION
     Dosage: 4 MG, UNK
     Route: 065
     Dates: start: 20140430
  3. DENOSUMAB [Concomitant]
     Active Substance: DENOSUMAB
     Indication: BREAST CANCER
     Dosage: 120 MG, QMO
     Route: 058
     Dates: start: 20150206, end: 20150625
  4. LETROZOLE. [Suspect]
     Active Substance: LETROZOLE
     Indication: PRODUCT USED FOR UNKNOWN INDICATION
     Dosage: 2.5 NG/DAY
     Route: 065
     Dates: start: 20100518, end: 20140315
  5. PANTOPRAZOL [Concomitant]
     Active Substance: PANTOPRAZOLE SODIUM
     Indication: DYSPEPSIA
     Dosage: ON DEMAND
     Route: 065
     Dates: start: 20141211
  6. EXEMESTANE. [Concomitant]
     Active Substance: EXEMESTANE
     Indication: BREAST CANCER
     Dosage: 25 MG, QD
     Route: 065
     Dates: start: 20140430, end: 20150708
  7. AFINITOR [Suspect]
     Active Substance: EVEROLIMUS
     Indication: BREAST CANCER
     Dosage: 10 MG, QD
     Route: 065
     Dates: start: 20140430, end: 20150708

REACTIONS (12)
  - Thrombocytopenia [Unknown]
  - Leukopenia [Unknown]
  - Dyspnoea [Unknown]
  - Organ failure [Fatal]
  - Pleural effusion [Unknown]
  - Malignant neoplasm progression [Fatal]
  - Polyneuropathy [Not Recovered/Not Resolved]
  - Infection [Unknown]
  - Hepatic failure [Unknown]
  - Vomiting [Unknown]
  - Metastases to liver [Unknown]
  - Ascites [Unknown]

NARRATIVE: CASE EVENT DATE: 20140820
